FAERS Safety Report 5316767-4 (Version None)
Quarter: 2007Q2

REPORT INFORMATION
  Report Type: 
  Country: None (occurrence: None)
  Receive Date: 20070504
  Receipt Date: 20070424
  Transmission Date: 20071010
  Serious: Yes (Hospitalization, Other)
  Sender: FDA-Public Use
  Company Number: VE-ABBOTT-07P-178-0364473-00

PATIENT
  Sex: Female
  Weight: 50 kg

DRUGS (4)
  1. HUMIRA [Suspect]
     Indication: RHEUMATOID ARTHRITIS
     Route: 058
     Dates: start: 20061127, end: 20070316
  2. HUMIRA [Suspect]
     Route: 058
     Dates: start: 20070410
  3. PIROXICAM [Suspect]
     Indication: RHEUMATOID ARTHRITIS
     Route: 048
     Dates: start: 20060101, end: 20070301
  4. PREDNISONE TAB [Concomitant]
     Indication: RHEUMATOID ARTHRITIS
     Route: 048
     Dates: start: 20040101, end: 20070301

REACTIONS (6)
  - ASTHENIA [None]
  - DIZZINESS [None]
  - GASTRIC ULCER HAEMORRHAGE [None]
  - HAEMATOCHEZIA [None]
  - HAEMOGLOBIN DECREASED [None]
  - MALAISE [None]
